FAERS Safety Report 24966338 (Version 2)
Quarter: 2025Q1

REPORT INFORMATION
  Report Type: Report from Study
  Country: DE (occurrence: DE)
  Receive Date: 20250213
  Receipt Date: 20250314
  Transmission Date: 20250409
  Serious: Yes (Hospitalization)
  Sender: PFIZER
  Company Number: DE-PFIZER INC-PV202500015187

PATIENT
  Age: 17 Year
  Sex: Female
  Weight: 56.4 kg

DRUGS (1)
  1. TOFACITINIB [Suspect]
     Active Substance: TOFACITINIB
     Indication: Juvenile idiopathic arthritis
     Dosage: 5 MG, 2X/DAY
     Dates: start: 20221206, end: 20241204

REACTIONS (2)
  - Lymphadenitis [Recovered/Resolved]
  - Drug ineffective [Recovered/Resolved]

NARRATIVE: CASE EVENT DATE: 20240704
